FAERS Safety Report 24634868 (Version 1)
Quarter: 2024Q4

REPORT INFORMATION
  Report Type: Spontaneous
  Country: US (occurrence: US)
  Receive Date: 20241119
  Receipt Date: 20241119
  Transmission Date: 20250115
  Serious: No
  Sender: AMNEAL
  Company Number: US-AMNEAL PHARMACEUTICALS-2023-AMRX-03665

PATIENT
  Age: 17 Year

DRUGS (1)
  1. ISOTRETINOIN [Suspect]
     Active Substance: ISOTRETINOIN
     Indication: Product used for unknown indication
     Dosage: UNK
     Route: 065
     Dates: start: 20231012

REACTIONS (4)
  - Disorientation [Unknown]
  - Eye contusion [Unknown]
  - Motor dysfunction [Unknown]
  - Amnesia [Unknown]

NARRATIVE: CASE EVENT DATE: 20231013
